FAERS Safety Report 9031846 (Version 2)
Quarter: 2013Q1

REPORT INFORMATION
  Report Type: Report from Study
  Country: IT (occurrence: IT)
  Receive Date: 20130124
  Receipt Date: 20130125
  Transmission Date: 20140127
  Serious: Yes (Hospitalization)
  Sender: FDA-Public Use
  Company Number: IT-EISAI INC-E2007-00819-CLI-IT

PATIENT
  Age: 36 Year
  Sex: Male
  Weight: 82.5 kg

DRUGS (7)
  1. E2007 (PERAMPANEL) [Suspect]
     Indication: EPILEPSY
     Dosage: DOUBLE BLIND CONVERSION PHASE
     Route: 048
     Dates: start: 20101020, end: 20110215
  2. E2007 (PERAMPANEL) [Suspect]
     Route: 048
     Dates: start: 20110216, end: 20111025
  3. E2007 (PERAMPANEL) [Suspect]
     Route: 048
     Dates: start: 20111026, end: 20111110
  4. E2007 (PERAMPANEL) [Suspect]
     Route: 048
     Dates: start: 20111111, end: 20120117
  5. E2007 (PERAMPANEL) [Suspect]
     Route: 048
     Dates: start: 20120118, end: 20120321
  6. ZONISAMIDE [Concomitant]
     Route: 048
     Dates: start: 200901
  7. OXCARBAZEPINE [Concomitant]
     Route: 048
     Dates: start: 200803

REACTIONS (3)
  - Gastritis [Unknown]
  - Nephrolithiasis [Not Recovered/Not Resolved]
  - Duodenal ulcer [Recovered/Resolved]
